FAERS Safety Report 11218953 (Version 1)
Quarter: 2015Q2

REPORT INFORMATION
  Report Type: Spontaneous
  Country: FR (occurrence: FR)
  Receive Date: 20150625
  Receipt Date: 20150625
  Transmission Date: 20150821
  Serious: Yes (Death, Disabling)
  Sender: FDA-Public Use
  Company Number: FR-SA-2015SA090973

PATIENT
  Sex: Female
  Weight: .73 kg

DRUGS (6)
  1. DEPAMIDE [Suspect]
     Active Substance: VALPROMIDE
     Route: 064
     Dates: start: 20141122, end: 20141126
  2. DEROXAT [Suspect]
     Active Substance: PAROXETINE HYDROCHLORIDE
     Route: 048
     Dates: start: 20141219, end: 20150105
  3. STILNOX [Suspect]
     Active Substance: ZOLPIDEM TARTRATE
     Route: 064
     Dates: end: 20141216
  4. DEROXAT [Suspect]
     Active Substance: PAROXETINE HYDROCHLORIDE
     Route: 048
     Dates: start: 20141216, end: 20141218
  5. DEROXAT [Suspect]
     Active Substance: PAROXETINE HYDROCHLORIDE
     Route: 048
     Dates: end: 20141216
  6. DEPAMIDE [Suspect]
     Active Substance: VALPROMIDE
     Route: 064
     Dates: start: 20141127, end: 20141215

REACTIONS (5)
  - Abortion induced [Fatal]
  - Cerebral ventricle dilatation [Fatal]
  - Talipes [Fatal]
  - Congenital central nervous system anomaly [Fatal]
  - Spina bifida [Fatal]

NARRATIVE: CASE EVENT DATE: 20150422
